FAERS Safety Report 10412836 (Version 1)
Quarter: 2014Q2

REPORT INFORMATION
  Report Type: Spontaneous
  Country: US (occurrence: None)
  Receive Date: 20140604
  Receipt Date: 20140604
  Transmission Date: 20141212
  Serious: Yes (Hospitalization)
  Sender: FDA-Public Use
  Company Number: 20120810CINRY3469

PATIENT
  Age: 36 Year
  Sex: Female

DRUGS (7)
  1. CINRYZE [Suspect]
     Indication: PROPHYLAXIS
     Route: 042
     Dates: start: 201206
  2. CINRYZE [Suspect]
     Indication: HEREDITARY ANGIOEDEMA
     Route: 042
     Dates: start: 201206
  3. PROPRANOLOL [Concomitant]
  4. PRILOSEC (OMEPRAZOLE) [Concomitant]
  5. EXCEDRIN MIGRAINE (THOMAPYRIN N ) [Concomitant]
  6. VITAMINS [Concomitant]
  7. DILAUDID (HYDROMORPHONE HYDROCHLORIDE) [Concomitant]

REACTIONS (2)
  - Hereditary angioedema [None]
  - Therapy change [None]
